FAERS Safety Report 13067975 (Version 1)
Quarter: 2016Q4

REPORT INFORMATION
  Report Type: Spontaneous
  Country: GB (occurrence: GB)
  Receive Date: 20161228
  Receipt Date: 20161228
  Transmission Date: 20170207
  Serious: Yes (Other)
  Sender: FDA-Public Use
  Company Number: PHHY2016GB178360

PATIENT
  Age: 66 Year
  Sex: Female
  Weight: 45 kg

DRUGS (3)
  1. CALCIUM [Concomitant]
     Active Substance: CALCIUM
     Indication: PRODUCT USED FOR UNKNOWN INDICATION
     Route: 065
  2. VITAMIN D [Concomitant]
     Active Substance: CHOLECALCIFEROL
     Indication: PRODUCT USED FOR UNKNOWN INDICATION
     Route: 065
  3. ZOLEDRONIC ACID [Suspect]
     Active Substance: ZOLEDRONIC ACID
     Indication: OSTEOPOROTIC FRACTURE
     Dosage: 5 MG, UNK
     Route: 042
     Dates: start: 20161122, end: 20161122

REACTIONS (5)
  - Vision blurred [Recovered/Resolved]
  - Facial pain [Not Recovered/Not Resolved]
  - Lethargy [Unknown]
  - Gingival pain [Not Recovered/Not Resolved]
  - Arthralgia [Recovered/Resolved]

NARRATIVE: CASE EVENT DATE: 20161122
